FAERS Safety Report 13257253 (Version 2)
Quarter: 2017Q2

REPORT INFORMATION
  Report Type: Spontaneous
  Country: DE (occurrence: DE)
  Receive Date: 20170221
  Receipt Date: 20170407
  Transmission Date: 20170830
  Serious: Yes (Death, Congenital Anomaly)
  Sender: FDA-Public Use
  Company Number: DE-BIOGEN-2017BI00359770

PATIENT

DRUGS (1)
  1. TYSABRI [Suspect]
     Active Substance: NATALIZUMAB
     Indication: MATERNAL EXPOSURE TIMING UNSPECIFIED
     Route: 064
     Dates: start: 201506, end: 201609

REACTIONS (6)
  - Congenital genital malformation [Fatal]
  - Foetal exposure timing unspecified [Recovered/Resolved]
  - Spina bifida occulta [Fatal]
  - Talipes [Fatal]
  - Exomphalos [Fatal]
  - Congenital ectopic bladder [Fatal]

NARRATIVE: CASE EVENT DATE: 20170208
